FAERS Safety Report 10507453 (Version 1)
Quarter: 2014Q4

REPORT INFORMATION
  Report Type: Spontaneous
  Country: US (occurrence: None)
  Receive Date: 20141008
  Receipt Date: 20141008
  Transmission Date: 20150528
  Serious: Yes (Hospitalization)
  Sender: FDA-Public Use
  Company Number: None

PATIENT
  Age: 65 Year
  Sex: Female
  Weight: 68.2 kg

DRUGS (10)
  1. SOFOSBUVIR [Suspect]
     Active Substance: SOFOSBUVIR
     Indication: HEPATITIS C
     Route: 048
     Dates: start: 20140523, end: 20140718
  2. SEROQUEL [Concomitant]
     Active Substance: QUETIAPINE FUMARATE
  3. VITAMIN B [Concomitant]
     Active Substance: VITAMIN B
  4. ASPIRIN. [Concomitant]
     Active Substance: ASPIRIN
  5. CENTRUM SILVER [Concomitant]
     Active Substance: VITAMINS
  6. RIBAVIRIN. [Suspect]
     Active Substance: RIBAVIRIN
     Indication: HEPATITIS C
     Dosage: 400 2X DAILY ORAL
     Route: 048
     Dates: start: 20140523, end: 20140718
  7. AXERT [Concomitant]
     Active Substance: ALMOTRIPTAN MALATE
  8. LORAZEPAM. [Concomitant]
     Active Substance: LORAZEPAM
  9. FISH OIL [Concomitant]
     Active Substance: FISH OIL
  10. EXCEDRIN [Concomitant]
     Active Substance: ACETAMINOPHEN\ASPIRIN\CAFFEINE

REACTIONS (2)
  - Colitis [None]
  - Renal cyst [None]

NARRATIVE: CASE EVENT DATE: 20140626
